FAERS Safety Report 22605525 (Version 1)
Quarter: 2023Q2

REPORT INFORMATION
  Report Type: Spontaneous
  Country: US (occurrence: None)
  Receive Date: 20230614
  Receipt Date: 20230614
  Transmission Date: 20230721
  Serious: Yes (Other)
  Sender: FDA-Public Use
  Company Number: None

PATIENT
  Age: 76 Year
  Sex: Male
  Weight: 67.95 kg

DRUGS (1)
  1. SEROQUEL [Suspect]
     Active Substance: QUETIAPINE FUMARATE
     Indication: Poor quality sleep
     Dosage: OTHER QUANTITY : 1 CAPSULE(S);?FREQUENCY : AT BEDTIME;?
     Route: 048
     Dates: start: 20230608, end: 20230609

REACTIONS (6)
  - Back pain [None]
  - Arthralgia [None]
  - Paralysis [None]
  - Weight bearing difficulty [None]
  - Discomfort [None]
  - Drug intolerance [None]

NARRATIVE: CASE EVENT DATE: 20230608
